FAERS Safety Report 7343306-9 (Version None)
Quarter: 2011Q1

REPORT INFORMATION
  Report Type: 
  Country: None (occurrence: None)
  Receive Date: 20110310
  Receipt Date: 20110307
  Transmission Date: 20110831
  Serious: Yes (Other)
  Sender: FDA-Public Use
  Company Number: US-PFIZER INC-2010176605

PATIENT
  Sex: Female

DRUGS (9)
  1. CHANTIX [Suspect]
     Indication: SMOKING CESSATION THERAPY
     Dosage: STARTER PACK AND CONTINUING MONTH PACK
     Dates: start: 20071230, end: 20080101
  2. AMBIEN [Concomitant]
     Indication: SLEEP APNOEA SYNDROME
     Dosage: UNK
     Dates: start: 20070101, end: 20090101
  3. ACETAMINOPHEN AND HYDROCODONE BITARTRATE [Concomitant]
     Indication: PAIN
     Dosage: UNK
     Dates: start: 20040101
  4. PAXIL [Concomitant]
  5. SYNTHROID [Concomitant]
     Indication: HYPOTHYROIDISM
     Dosage: UNK
     Dates: start: 20070101
  6. PAXIL [Concomitant]
     Indication: ANXIETY
     Dosage: UNK
     Dates: start: 20040101
  7. PAXIL [Concomitant]
  8. PAXIL [Concomitant]
     Indication: DEPRESSION
  9. PREMPRO [Concomitant]
     Indication: MENOPAUSE
     Dosage: UNK
     Dates: start: 20040101

REACTIONS (3)
  - ANXIETY [None]
  - DEPRESSION [None]
  - COGNITIVE DISORDER [None]
